FAERS Safety Report 4931852-4 (Version None)
Quarter: 2006Q1

REPORT INFORMATION
  Report Type: 
  Country: None (occurrence: None)
  Receive Date: 20060303
  Receipt Date: 20050309
  Transmission Date: 20060701
  Serious: Yes (Hospitalization)
  Sender: FDA-Public Use
  Company Number: US-MERCK-0503USA01959

PATIENT
  Age: 89 Year
  Sex: Female
  Weight: 64 kg

DRUGS (31)
  1. ATENOLOL [Concomitant]
     Route: 048
  2. LOTREL [Concomitant]
     Route: 048
  3. DETROL LA [Concomitant]
     Route: 048
  4. PREDNISONE [Concomitant]
     Route: 048
  5. DITROPAN XL [Concomitant]
     Route: 048
  6. SULFASALAZINE [Concomitant]
     Route: 048
  7. CIPRO [Concomitant]
     Route: 048
  8. CEPHALEXIN [Concomitant]
     Route: 048
  9. RIFAMPIN [Concomitant]
     Route: 048
  10. ISOSORBIDE [Concomitant]
     Route: 048
  11. OXYTROL [Concomitant]
     Route: 065
  12. AMOXICILLIN AND CLAVULANATE POTASSIUM [Concomitant]
     Route: 048
  13. SEPTRA DS [Concomitant]
     Route: 048
  14. NITROGLYCERIN [Concomitant]
     Route: 065
  15. GUAIFENEX DM [Concomitant]
     Route: 048
  16. BENZONATATE [Concomitant]
     Route: 048
  17. LEVAQUIN [Concomitant]
     Route: 048
  18. NORVASC [Concomitant]
     Route: 065
  19. VIOXX [Suspect]
     Indication: OSTEOARTHRITIS
     Route: 048
     Dates: start: 20011127, end: 20040816
  20. FOSAMAX [Concomitant]
     Route: 048
  21. ISOSORBIDE MONONITRATE [Concomitant]
     Route: 048
     Dates: start: 20030101
  22. CLONIDINE HYDROCHLORIDE [Concomitant]
     Route: 048
     Dates: start: 20010101, end: 20040101
  23. HYDRODIURIL [Concomitant]
     Route: 048
  24. ZOCOR [Concomitant]
     Route: 048
     Dates: start: 20010101
  25. ASPIRIN [Concomitant]
     Route: 065
     Dates: start: 20030101
  26. ZESTRIL [Concomitant]
     Indication: HYPERTENSION
     Route: 065
     Dates: start: 20030101, end: 20040101
  27. TYLENOL (CAPLET) [Concomitant]
     Route: 065
  28. VIACTIV SOFT CALCIUM CHEWS [Concomitant]
     Route: 065
  29. OSTEO-BI-FLEX [Concomitant]
     Route: 065
  30. HYDROCODONE BITARTRATE [Concomitant]
     Route: 048
  31. ACETAMINOPHEN AND HYDROCODONE BITARTRATE [Concomitant]
     Route: 048

REACTIONS (13)
  - ACUTE MYOCARDIAL INFARCTION [None]
  - ADVERSE EVENT [None]
  - BASAL CELL CARCINOMA [None]
  - BRADYCARDIA [None]
  - CARDIAC FAILURE CONGESTIVE [None]
  - CORONARY ARTERY DISEASE [None]
  - COUGH [None]
  - ELECTROCARDIOGRAM ABNORMAL [None]
  - HYPERTENSION [None]
  - HYPOTENSION [None]
  - LOCALISED INFECTION [None]
  - SYNCOPE [None]
  - URINARY TRACT INFECTION [None]
